FAERS Safety Report 19471876 (Version 2)
Quarter: 2021Q3

REPORT INFORMATION
  Report Type: Report from Study
  Country: None (occurrence: AU)
  Receive Date: 20210628
  Receipt Date: 20210709
  Transmission Date: 20211014
  Serious: Yes (Hospitalization)
  Sender: FDA-Public Use
  Company Number: AU-ABBVIE-21K-008-3964799-00

PATIENT
  Sex: Female

DRUGS (2)
  1. DUODOPA [Suspect]
     Active Substance: CARBIDOPA\LEVODOPA
  2. DUODOPA [Suspect]
     Active Substance: CARBIDOPA\LEVODOPA
     Indication: PARKINSON^S DISEASE
     Dosage: GEL CASSETTE
     Route: 050
     Dates: start: 20161205

REACTIONS (6)
  - Stoma site erythema [Unknown]
  - Pelvic fracture [Recovering/Resolving]
  - Balance disorder [Recovering/Resolving]
  - Joint dislocation [Recovering/Resolving]
  - Stoma site discharge [Unknown]
  - Fall [Recovering/Resolving]
